FAERS Safety Report 11107261 (Version 1)
Quarter: 2015Q2

REPORT INFORMATION
  Report Type: Spontaneous
  Country: US (occurrence: US)
  Receive Date: 20150512
  Receipt Date: 20150512
  Transmission Date: 20150821
  Serious: No
  Sender: FDA-Public Use
  Company Number: US-LEO PHARMA-234049

PATIENT
  Age: 66 Year
  Sex: Female

DRUGS (5)
  1. OLAY MOISTURIZER [Concomitant]
     Indication: PRODUCT USED FOR UNKNOWN INDICATION
     Dates: start: 1963, end: 1967
  2. FINACEA [Concomitant]
     Active Substance: AZELAIC ACID
     Indication: ROSACEA
  3. PICATO [Suspect]
     Active Substance: INGENOL MEBUTATE
     Dates: start: 2015
  4. PICATO [Suspect]
     Active Substance: INGENOL MEBUTATE
     Indication: ACTINIC KERATOSIS
     Dates: start: 2014
  5. MOISTUREL [Concomitant]
     Active Substance: DIMETHICONE
     Indication: PRODUCT USED FOR UNKNOWN INDICATION

REACTIONS (7)
  - Application site exfoliation [Unknown]
  - Inappropriate schedule of drug administration [Unknown]
  - Application site vesicles [Unknown]
  - Drug administered at inappropriate site [Unknown]
  - Therapeutic response unexpected [Unknown]
  - Blister [Unknown]
  - Application site pain [Unknown]
